FAERS Safety Report 6177758-7 (Version None)
Quarter: 2009Q2

REPORT INFORMATION
  Report Type: 
  Country: None (occurrence: None)
  Receive Date: 20090501
  Receipt Date: 20090501
  Transmission Date: 20091009
  Serious: Yes (Life-Threatening)
  Sender: FDA-Public Use
  Company Number: None

PATIENT
  Age: 66 Year
  Sex: Male
  Weight: 43 kg

DRUGS (15)
  1. INSULIN ASPART [Suspect]
     Dosage: SSI-H
     Dates: start: 20090320, end: 20090322
  2. HUMULIN 70/30 [Suspect]
     Dosage: 10 U IN AM, 20 U IN PM
     Dates: start: 20090321, end: 20090322
  3. HEPARIN [Concomitant]
  4. ASPIRIN [Concomitant]
  5. ATORVASTATIN [Concomitant]
  6. AZATHIOPRINE [Concomitant]
  7. AZITHROMYCIN [Concomitant]
  8. CAL. CARBONATE [Concomitant]
  9. CEFEPIME [Concomitant]
  10. FOLIC ACID [Concomitant]
  11. MGO [Concomitant]
  12. MEGESTROL ACETATE [Concomitant]
  13. METHYLPHENIDATE HCL [Concomitant]
  14. METRONIDAZIDE [Concomitant]
  15. M.V.I. [Concomitant]

REACTIONS (3)
  - DYSPNOEA [None]
  - SOMNOLENCE [None]
  - TACHYCARDIA [None]
